APPROVED DRUG PRODUCT: PEMAZYRE
Active Ingredient: PEMIGATINIB
Strength: 13.5MG
Dosage Form/Route: TABLET;ORAL
Application: N213736 | Product #003
Applicant: INCYTE CORP
Approved: Apr 17, 2020 | RLD: Yes | RS: Yes | Type: RX

PATENTS:
Patent 10131667 | Expires: Apr 17, 2034
Patent 11466004 | Expires: May 3, 2039
Patent 11466004 | Expires: May 3, 2039
Patent 11466004 | Expires: May 3, 2039
Patent 11628162 | Expires: Aug 30, 2040
Patent 11628162 | Expires: Aug 30, 2040
Patent 11628162 | Expires: Aug 30, 2040
Patent 11628162 | Expires: Aug 30, 2040
Patent 9611267 | Expires: Jan 30, 2035

EXCLUSIVITY:
Code: ODE-292 | Date: Apr 17, 2027
Code: ODE-404 | Date: Aug 26, 2029